FAERS Safety Report 10723574 (Version 1)
Quarter: 2015Q1

REPORT INFORMATION
  Report Type: Spontaneous
  Country: US (occurrence: None)
  Receive Date: 20150116
  Receipt Date: 20150116
  Transmission Date: 20150721
  Serious: Yes (Death, Hospitalization)
  Sender: FDA-Public Use
  Company Number: None

PATIENT
  Age: 52 Year
  Sex: Female

DRUGS (10)
  1. NOXAFIL [Concomitant]
     Active Substance: POSACONAZOLE
  2. BACTRIM [Concomitant]
     Active Substance: SULFAMETHOXAZOLE\TRIMETHOPRIM
  3. LEUCOVORIN [Concomitant]
     Active Substance: LEUCOVORIN
  4. MAGNESIUM [Concomitant]
     Active Substance: MAGNESIUM
  5. URSODIOL. [Concomitant]
     Active Substance: URSODIOL
  6. PRIVIGEN [Suspect]
     Active Substance: HUMAN IMMUNOGLOBULIN G
     Indication: BONE MARROW TRANSPLANT
     Route: 042
  7. TACROLIMUS. [Concomitant]
     Active Substance: TACROLIMUS
  8. PROTONIX [Concomitant]
     Active Substance: PANTOPRAZOLE SODIUM
  9. PRIVIGEN [Suspect]
     Active Substance: HUMAN IMMUNOGLOBULIN G
     Indication: IMMUNODEFICIENCY
     Route: 042
  10. PREDNISONE. [Concomitant]
     Active Substance: PREDNISONE

REACTIONS (1)
  - Respiratory disorder [None]

NARRATIVE: CASE EVENT DATE: 20150114
